FAERS Safety Report 6600459-5 (Version None)
Quarter: 2010Q1

REPORT INFORMATION
  Report Type: 
  Country: None (occurrence: None)
  Receive Date: 20100223
  Receipt Date: 20100223
  Transmission Date: 20100710
  Serious: Yes (Other)
  Sender: FDA-Public Use
  Company Number: None

PATIENT
  Age: 28 Year
  Sex: Female
  Weight: 68.0396 kg

DRUGS (2)
  1. CEFDINIR [Suspect]
     Dosage: PO
     Route: 048
  2. ORTHO-NOVUM [Concomitant]

REACTIONS (12)
  - ARTHRALGIA [None]
  - ARTHRITIS [None]
  - BURNING SENSATION [None]
  - DRUG EFFECT DECREASED [None]
  - ERYTHEMA [None]
  - FATIGUE [None]
  - GAIT DISTURBANCE [None]
  - OEDEMA PERIPHERAL [None]
  - PAIN [None]
  - PAIN IN EXTREMITY [None]
  - RASH PAPULAR [None]
  - URTICARIA [None]
